FAERS Safety Report 5797726-4 (Version None)
Quarter: 2008Q3

REPORT INFORMATION
  Report Type: 
  Country: None (occurrence: None)
  Receive Date: 20080702
  Receipt Date: 20080630
  Transmission Date: 20090109
  Serious: Yes (Other)
  Sender: FDA-Public Use
  Company Number: US-BAYER-200810461BCC

PATIENT
  Age: 87 Year
  Sex: Male
  Weight: 97 kg

DRUGS (4)
  1. ALEVE (CAPLET) [Suspect]
     Indication: ARTHRALGIA
     Dosage: TOTAL DAILY DOSE: 220 MG  UNIT DOSE: 220 MG
     Route: 048
     Dates: start: 20080101, end: 20080101
  2. INSULIN [Concomitant]
  3. LEVOXYL [Concomitant]
     Dosage: TOTAL DAILY DOSE: 0.137 MG  UNIT DOSE: 0.137 MG
     Route: 048
  4. LISINOPRIL [Concomitant]
     Dosage: UNIT DOSE: 10 MG
     Route: 048

REACTIONS (3)
  - BLOOD URINE PRESENT [None]
  - CHROMATURIA [None]
  - DYSURIA [None]
